FAERS Safety Report 5937697-0 (Version None)
Quarter: 2008Q4

REPORT INFORMATION
  Report Type: 
  Country: None (occurrence: None)
  Receive Date: 20081031
  Receipt Date: 20081024
  Transmission Date: 20090506
  Serious: Yes (Other)
  Sender: FDA-Public Use
  Company Number: IE-MERCK-0810GBR00033

PATIENT
  Age: 79 Year
  Sex: Female

DRUGS (4)
  1. ZETIA [Suspect]
     Indication: BLOOD CHOLESTEROL INCREASED
     Route: 048
     Dates: start: 20080909
  2. FOSAMAX [Concomitant]
     Route: 048
  3. LORMETAZEPAM [Concomitant]
     Route: 065
  4. FLAXSEED [Concomitant]
     Route: 065

REACTIONS (2)
  - MUSCLE SPASMS [None]
  - MYALGIA [None]
